FAERS Safety Report 23139506 (Version 1)
Quarter: 2023Q4

REPORT INFORMATION
  Report Type: Spontaneous
  Country: CN (occurrence: CN)
  Receive Date: 20231102
  Receipt Date: 20231102
  Transmission Date: 20240109
  Serious: Yes (Other)
  Sender: FDA-Public Use
  Company Number: CN-ALCON LABORATORIES-ALC2023CN004910

PATIENT
  Age: 27 Year
  Sex: Female
  Weight: 50 kg

DRUGS (6)
  1. ALCAINE [Suspect]
     Active Substance: PROPARACAINE HYDROCHLORIDE
     Indication: Anaesthesia eye
     Dosage: 1 DROP, QD
     Route: 047
     Dates: start: 20230708, end: 20230708
  2. LEVOFLOXACIN [Concomitant]
     Active Substance: LEVOFLOXACIN
     Indication: Chalazion
     Dosage: 1 DROP, QID
     Route: 047
     Dates: start: 20230708, end: 20230714
  3. DEXAMETHASONE SODIUM PHOSPHATE [Concomitant]
     Active Substance: DEXAMETHASONE SODIUM PHOSPHATE
     Indication: Chalazion
     Dosage: 0.1 MG, QD
     Route: 047
     Dates: start: 20230708, end: 20230708
  4. GATIFLOXACIN [Concomitant]
     Active Substance: GATIFLOXACIN
     Indication: Chalazion
     Dosage: 1 DROP, QD
     Route: 047
     Dates: start: 20230708, end: 20230714
  5. LIDOCAINE HYDROCHLORIDE [Concomitant]
     Active Substance: DEXTROSE MONOHYDRATE\EPINEPHRINE\EPINEPHRINE BITARTRATE\LIDOCAINE\LIDOCAINE HYDROCHLORIDE\LIDOCAINE
     Indication: Local anaesthesia
     Dosage: 0.1 G, QD
     Route: 047
     Dates: start: 20230708, end: 20230708
  6. SODIUM CHLORIDE [Concomitant]
     Active Substance: SODIUM CHLORIDE
     Indication: Chalazion
     Dosage: 100 ML, QD
     Route: 047
     Dates: start: 20230708, end: 20230708

REACTIONS (1)
  - Corneal epithelium defect [Recovered/Resolved]

NARRATIVE: CASE EVENT DATE: 20230708
